FAERS Safety Report 25430579 (Version 1)
Quarter: 2025Q2

REPORT INFORMATION
  Report Type: Spontaneous
  Country: FI (occurrence: FI)
  Receive Date: 20250612
  Receipt Date: 20250612
  Transmission Date: 20250716
  Serious: Yes (Other)
  Sender: INSUD PHARMA
  Company Number: None

PATIENT
  Age: 18 Year
  Sex: Female

DRUGS (3)
  1. DROSPIRENONE [Suspect]
     Active Substance: DROSPIRENONE
     Indication: Contraception
     Dosage: 1X1
     Route: 048
     Dates: end: 202505
  2. SERTRALINE [Concomitant]
     Active Substance: SERTRALINE HYDROCHLORIDE
  3. PROPRANOLOL HYDROCHLORIDE [Concomitant]
     Active Substance: PROPRANOLOL HYDROCHLORIDE

REACTIONS (3)
  - Pregnancy on oral contraceptive [Recovering/Resolving]
  - Abortion spontaneous [Recovering/Resolving]
  - Pregnancy on oral contraceptive [Recovering/Resolving]

NARRATIVE: CASE EVENT DATE: 20250101
